FAERS Safety Report 24303980 (Version 1)
Quarter: 2024Q3

REPORT INFORMATION
  Report Type: Spontaneous
  Country: JP (occurrence: JP)
  Receive Date: 20240910
  Receipt Date: 20240910
  Transmission Date: 20241017
  Serious: Yes (Hospitalization, Other)
  Sender: Steriscience PTE
  Company Number: JP-STERISCIENCE B.V.-2024-ST-001337

PATIENT
  Age: 43 Year
  Sex: Male

DRUGS (1)
  1. MEROPENEM [Suspect]
     Active Substance: MEROPENEM
     Indication: Meningitis bacterial
     Dosage: UNK
     Route: 065

REACTIONS (1)
  - Disease recurrence [None]
